FAERS Safety Report 12111613 (Version 2)
Quarter: 2016Q1

REPORT INFORMATION
  Report Type: Spontaneous
  Country: US (occurrence: US)
  Receive Date: 20160224
  Receipt Date: 20160314
  Transmission Date: 20160526
  Serious: No
  Sender: FDA-Public Use
  Company Number: US-ELI_LILLY_AND_COMPANY-US201602000512

PATIENT
  Sex: Male
  Weight: 88.45 kg

DRUGS (3)
  1. CIALIS [Suspect]
     Active Substance: TADALAFIL
     Indication: ERECTILE DYSFUNCTION
     Dosage: UNK UNK, UNKNOWN
     Route: 048
     Dates: start: 201511, end: 201511
  2. ANDROGEL [Concomitant]
     Active Substance: TESTOSTERONE
     Indication: BLOOD TESTOSTERONE
     Dosage: 1.9 MG, UNKNOWN
     Route: 065
     Dates: start: 2013
  3. FISH OIL [Concomitant]
     Active Substance: FISH OIL
     Indication: BLOOD CHOLESTEROL
     Dosage: UNK, UNKNOWN
     Route: 065
     Dates: start: 2009

REACTIONS (2)
  - Drug ineffective [Unknown]
  - Ocular hyperaemia [Unknown]
